FAERS Safety Report 16387191 (Version 1)
Quarter: 2019Q2

REPORT INFORMATION
  Report Type: Spontaneous
  Country: TW (occurrence: TW)
  Receive Date: 20190604
  Receipt Date: 20190604
  Transmission Date: 20190711
  Serious: Yes (Other)
  Sender: FDA-Public Use
  Company Number: TW-ROCHE-2326905

PATIENT
  Age: 34 Year
  Sex: Male

DRUGS (15)
  1. PREDONINE [Concomitant]
     Active Substance: PREDNISOLONE
     Dosage: DOSE TAILORED
     Route: 065
     Dates: start: 20190314
  2. PREDONINE [Concomitant]
     Active Substance: PREDNISOLONE
     Indication: HEART TRANSPLANT REJECTION
     Route: 065
     Dates: start: 2012, end: 201902
  3. PREDONINE [Concomitant]
     Active Substance: PREDNISOLONE
     Route: 065
     Dates: start: 201902
  4. CEFTAZIDIME. [Concomitant]
     Active Substance: CEFTAZIDIME
     Route: 065
     Dates: start: 20190218
  5. CELLCEPT [Suspect]
     Active Substance: MYCOPHENOLATE MOFETIL\MYCOPHENOLATE MOFETIL HYDROCHLORIDE
     Route: 065
     Dates: start: 20190201
  6. CYCLOSPORINE. [Concomitant]
     Active Substance: CYCLOSPORINE
     Route: 065
     Dates: start: 201902, end: 20190218
  7. CELLCEPT [Suspect]
     Active Substance: MYCOPHENOLATE MOFETIL\MYCOPHENOLATE MOFETIL HYDROCHLORIDE
     Indication: HEART TRANSPLANT REJECTION
     Route: 065
     Dates: start: 20150723, end: 201902
  8. METHYLPREDNISOLONE. [Concomitant]
     Active Substance: METHYLPREDNISOLONE
     Route: 065
     Dates: start: 20190221
  9. CERTICAN [Concomitant]
     Active Substance: EVEROLIMUS
     Indication: HEART TRANSPLANT REJECTION
     Route: 065
     Dates: start: 2012, end: 201811
  10. TACROLIMUS. [Concomitant]
     Active Substance: TACROLIMUS
     Route: 065
     Dates: start: 20150601, end: 20150722
  11. PREDONINE [Concomitant]
     Active Substance: PREDNISOLONE
     Route: 065
     Dates: start: 20190509
  12. TACROLIMUS. [Concomitant]
     Active Substance: TACROLIMUS
     Indication: HEART TRANSPLANT REJECTION
     Route: 065
     Dates: start: 2012, end: 20150531
  13. TACROLIMUS. [Concomitant]
     Active Substance: TACROLIMUS
     Route: 065
     Dates: start: 20190218
  14. VANCOMYCIN [Concomitant]
     Active Substance: VANCOMYCIN
     Route: 065
     Dates: start: 20190219
  15. CYCLOSPORINE. [Concomitant]
     Active Substance: CYCLOSPORINE
     Indication: HEART TRANSPLANT REJECTION
     Route: 065
     Dates: start: 20150601, end: 201902

REACTIONS (19)
  - Fungaemia [Recovering/Resolving]
  - Atrioventricular block complete [Unknown]
  - Candida infection [Unknown]
  - Anuria [Unknown]
  - Pulseless electrical activity [Unknown]
  - Gaze palsy [Unknown]
  - Transplant rejection [Recovered/Resolved]
  - Bacteraemia [Recovering/Resolving]
  - Dyspnoea [Unknown]
  - Loss of consciousness [Unknown]
  - Urine output decreased [Unknown]
  - Complications of transplanted heart [Unknown]
  - Pyrexia [Unknown]
  - Septic shock [Recovering/Resolving]
  - End stage renal disease [Not Recovered/Not Resolved]
  - Muscle rigidity [Unknown]
  - Metabolic acidosis [Unknown]
  - Blood pressure decreased [Unknown]
  - White blood cell count increased [Unknown]

NARRATIVE: CASE EVENT DATE: 201807
